FAERS Safety Report 18864191 (Version 1)
Quarter: 2021Q1

REPORT INFORMATION
  Report Type: Spontaneous
  Country: KR (occurrence: KR)
  Receive Date: 20210208
  Receipt Date: 20210208
  Transmission Date: 20210420
  Serious: Yes (Life-Threatening, Hospitalization, Other)
  Sender: FDA-Public Use
  Company Number: KR-GLAXOSMITHKLINE-KR2021GSK024649

PATIENT
  Age: 54 Year
  Sex: Male

DRUGS (5)
  1. PROPAFENONE. [Suspect]
     Active Substance: PROPAFENONE
     Indication: ATRIAL FIBRILLATION
     Dosage: 325 MG, BID
     Route: 065
  2. BISOPROLOL [Concomitant]
     Active Substance: BISOPROLOL
     Indication: ATRIAL FIBRILLATION
     Dosage: 2.5 MG
  3. VERAPAMIL [Suspect]
     Active Substance: VERAPAMIL HYDROCHLORIDE
     Indication: VENTRICULAR TACHYCARDIA
     Dosage: 5 MG
     Route: 042
  4. PROPAFENONE. [Interacting]
     Active Substance: PROPAFENONE
     Dosage: 600 MG, TID, (IN THE PAST 12 HOURS)
     Route: 065
  5. PROPAFENONE. [Interacting]
     Active Substance: PROPAFENONE
     Dosage: 600 MG,IN THE MORNING
     Route: 065

REACTIONS (11)
  - Overdose [Recovered/Resolved]
  - Nodal arrhythmia [Recovered/Resolved]
  - Toxicity to various agents [Recovered/Resolved]
  - Cardiotoxicity [Recovered/Resolved]
  - Palpitations [Recovered/Resolved]
  - Tachycardia [Recovered/Resolved]
  - Alcohol interaction [Unknown]
  - Ventricular tachycardia [Recovered/Resolved]
  - Asthenia [Recovered/Resolved]
  - Bundle branch block right [Recovered/Resolved]
  - Cardiac arrest [Recovered/Resolved]
